FAERS Safety Report 23621641 (Version 2)
Quarter: 2024Q1

REPORT INFORMATION
  Report Type: Report from Study
  Country: RU (occurrence: RU)
  Receive Date: 20240312
  Receipt Date: 20240316
  Transmission Date: 20240410
  Serious: Yes (Death, Other)
  Sender: FDA-Public Use
  Company Number: RU-002147023-NVSC2024RU052298

PATIENT
  Age: 52 Year
  Sex: Female
  Weight: 90 kg

DRUGS (1)
  1. KISQALI [Suspect]
     Active Substance: RIBOCICLIB
     Indication: Product used for unknown indication
     Dosage: 600 MG, QD
     Route: 048
     Dates: start: 20230516

REACTIONS (2)
  - Breast cancer [Fatal]
  - Malignant neoplasm progression [Fatal]

NARRATIVE: CASE EVENT DATE: 20231206
